FAERS Safety Report 5463312-9 (Version None)
Quarter: 2007Q3

REPORT INFORMATION
  Report Type: 
  Country: None (occurrence: None)
  Receive Date: 20070920
  Receipt Date: 20070911
  Transmission Date: 20080115
  Serious: Yes (Hospitalization)
  Sender: FDA-Public Use
  Company Number: MX-GILEAD-2007-0012809

PATIENT
  Sex: Male
  Weight: 63 kg

DRUGS (8)
  1. EMTRIVA [Suspect]
     Indication: HIV INFECTION
     Route: 048
  2. EMTRIVA [Suspect]
     Route: 048
     Dates: start: 20070607, end: 20070629
  3. VIREAD [Suspect]
     Indication: HIV INFECTION
     Route: 048
     Dates: start: 20070607, end: 20070629
  4. SAQUINAVIR [Suspect]
     Indication: HIV INFECTION
     Route: 048
  5. SAQUINAVIR [Suspect]
     Route: 048
     Dates: start: 20070607, end: 20070629
  6. RITONAVIR [Suspect]
     Indication: HIV INFECTION
     Route: 048
  7. RITONAVIR [Suspect]
     Route: 048
     Dates: start: 20070607, end: 20070629
  8. TRIMETHOPRIM + SULFAMETHOXAZOLE [Concomitant]
     Dosage: HIGH DOSE
     Route: 065
     Dates: start: 20070601

REACTIONS (2)
  - BLOOD CREATININE INCREASED [None]
  - DEHYDRATION [None]
